FAERS Safety Report 7051335-8 (Version None)
Quarter: 2010Q4

REPORT INFORMATION
  Report Type: 
  Country: None (occurrence: None)
  Receive Date: 20101014
  Receipt Date: 20100927
  Transmission Date: 20110411
  Serious: Yes (Hospitalization, Other)
  Sender: FDA-Public Use
  Company Number: JPI-P-012103

PATIENT
  Age: 59 Year
  Sex: Female
  Weight: 54.4316 kg

DRUGS (6)
  1. XYREM [Suspect]
     Indication: NARCOLEPSY
     Dosage: 4.5 GM (2.25 GM, 2 IN 1 D), ORAL, 5.5 GM (2.75 GM, 2 IN 1 D), ORAL
     Route: 048
     Dates: start: 20060717, end: 20090212
  2. XYREM [Suspect]
     Indication: NARCOLEPSY
     Dosage: 4.5 GM (2.25 GM, 2 IN 1 D), ORAL, 5.5 GM (2.75 GM, 2 IN 1 D), ORAL
     Route: 048
     Dates: start: 20090213
  3. TIZANIDINE HCL [Concomitant]
  4. FENTANYL [Concomitant]
  5. VITAMINS [Concomitant]
  6. VENLAFAXINE [Concomitant]

REACTIONS (5)
  - ABNORMAL SLEEP-RELATED EVENT [None]
  - FALL [None]
  - INTERVERTEBRAL DISC PROTRUSION [None]
  - MIDDLE INSOMNIA [None]
  - POOR QUALITY SLEEP [None]
